FAERS Safety Report 18222589 (Version 2)
Quarter: 2020Q4

REPORT INFORMATION
  Report Type: Report from Study
  Country: CO (occurrence: CO)
  Receive Date: 20200902
  Receipt Date: 20201109
  Transmission Date: 20210113
  Serious: Yes (Life-Threatening)
  Sender: FDA-Public Use
  Company Number: CO-JNJFOC-20200837113

PATIENT
  Age: 69 Year
  Sex: Female
  Weight: 58 kg

DRUGS (2)
  1. SIMPONI [Suspect]
     Active Substance: GOLIMUMAB
     Indication: RHEUMATOID ARTHRITIS
     Route: 058
     Dates: start: 20140228, end: 20191011
  2. SIMPONI [Suspect]
     Active Substance: GOLIMUMAB
     Route: 058
     Dates: start: 20200730

REACTIONS (4)
  - Musculoskeletal pain [Not Recovered/Not Resolved]
  - COVID-19 [Recovering/Resolving]
  - Ear infection [Not Recovered/Not Resolved]
  - Arthralgia [Not Recovered/Not Resolved]

NARRATIVE: CASE EVENT DATE: 2020
